FAERS Safety Report 9633399 (Version 1)
Quarter: 2013Q4

REPORT INFORMATION
  Report Type: Spontaneous
  Country: US (occurrence: US)
  Receive Date: 20131021
  Receipt Date: 20131021
  Transmission Date: 20140711
  Serious: Yes (Other)
  Sender: FDA-Public Use
  Company Number: US-BRISTOL-MYERS SQUIBB COMPANY-19198167

PATIENT
  Age: 67 Year
  Sex: Male

DRUGS (4)
  1. YERVOY [Suspect]
     Indication: MALIGNANT MELANOMA
     Dosage: LAST DOSE:01AUG13
     Dates: start: 2013
  2. TEMODAR [Concomitant]
     Indication: MALIGNANT MELANOMA
  3. CIPRO [Concomitant]
  4. EPIPEN [Concomitant]
     Indication: ALLERGY TO ARTHROPOD STING

REACTIONS (11)
  - Malignant neoplasm progression [Unknown]
  - Vomiting [Recovering/Resolving]
  - Diarrhoea [Recovering/Resolving]
  - Decreased appetite [Recovering/Resolving]
  - Blood pressure increased [Unknown]
  - Blood sodium decreased [Unknown]
  - Hyperhidrosis [Unknown]
  - Rhinorrhoea [Unknown]
  - Ocular hyperaemia [Recovered/Resolved]
  - Balance disorder [Unknown]
  - Loose tooth [Unknown]
